FAERS Safety Report 9630691 (Version 3)
Quarter: 2014Q1

REPORT INFORMATION
  Report Type: Report from Study
  Country: CA (occurrence: CA)
  Receive Date: 20131018
  Receipt Date: 20140319
  Transmission Date: 20141002
  Serious: Yes (Other)
  Sender: FDA-Public Use
  Company Number: CA-JNJFOC-20130411508

PATIENT
  Age: 64 Year
  Sex: Male
  Weight: 84 kg

DRUGS (10)
  1. REMICADE [Suspect]
     Indication: PSORIASIS
     Route: 042
     Dates: start: 2002
  2. REMICADE [Suspect]
     Indication: PSORIASIS
     Route: 042
     Dates: start: 20130321
  3. REMICADE [Suspect]
     Indication: PSORIASIS
     Route: 042
     Dates: start: 20130416, end: 20130416
  4. REMICADE [Suspect]
     Indication: PSORIASIS
     Route: 042
     Dates: start: 20130305
  5. REMICADE [Suspect]
     Indication: RHEUMATOID ARTHRITIS
     Route: 042
     Dates: start: 20130416, end: 20130416
  6. REMICADE [Suspect]
     Indication: RHEUMATOID ARTHRITIS
     Route: 042
     Dates: start: 20130321
  7. REMICADE [Suspect]
     Indication: RHEUMATOID ARTHRITIS
     Route: 042
     Dates: start: 20130305
  8. REMICADE [Suspect]
     Indication: RHEUMATOID ARTHRITIS
     Route: 042
     Dates: start: 2002
  9. ACETAMINOPHEN [Concomitant]
     Route: 048
  10. BENADRYL [Concomitant]
     Route: 048

REACTIONS (9)
  - Infusion related reaction [Recovered/Resolved]
  - Feeling hot [Recovered/Resolved]
  - Chest discomfort [Recovered/Resolved]
  - Nausea [Recovered/Resolved]
  - Headache [Recovered/Resolved]
  - Dizziness [Recovered/Resolved]
  - Oxygen saturation decreased [Recovered/Resolved]
  - Hypertension [Recovered/Resolved]
  - Tremor [Recovered/Resolved]
